FAERS Safety Report 8004006-5 (Version None)
Quarter: 2011Q4

REPORT INFORMATION
  Report Type: 
  Country: None (occurrence: None)
  Receive Date: 20111222
  Receipt Date: 20111220
  Transmission Date: 20120403
  Serious: Yes (Hospitalization)
  Sender: FDA-Public Use
  Company Number: GB-AMGEN-GBRCT2011067695

PATIENT
  Age: 76 Year
  Sex: Female

DRUGS (4)
  1. DENOSUMAB [Suspect]
     Indication: BREAST CANCER
     Dosage: 120 MG, Q3MO
     Route: 058
     Dates: start: 20110803
  2. CYCLOPHOSPHAMIDE [Concomitant]
     Dosage: UNK
     Dates: start: 20111214
  3. METHOTREXATE [Concomitant]
     Dosage: UNK
     Dates: start: 20111214
  4. FLUOROURACIL [Concomitant]
     Dosage: UNK
     Dates: start: 20111214

REACTIONS (1)
  - DIVERTICULITIS [None]
